FAERS Safety Report 10981774 (Version 2)
Quarter: 2015Q2

REPORT INFORMATION
  Report Type: Spontaneous
  Country: US (occurrence: US)
  Receive Date: 20150402
  Receipt Date: 20150525
  Transmission Date: 20150821
  Serious: No
  Sender: FDA-Public Use
  Company Number: US-JNJFOC-20140408167

PATIENT
  Age: 43 Year
  Sex: Female
  Weight: 64.86 kg

DRUGS (2)
  1. IMODIUM A-D [Suspect]
     Active Substance: LOPERAMIDE HYDROCHLORIDE
     Indication: COLITIS
     Dosage: 2 CAPLETS
     Route: 048
  2. IMODIUM A-D [Suspect]
     Active Substance: LOPERAMIDE HYDROCHLORIDE
     Indication: IRRITABLE BOWEL SYNDROME
     Dosage: 2 CAPLETS
     Route: 048

REACTIONS (3)
  - Product use issue [Unknown]
  - Contraindication to medical treatment [Unknown]
  - Inappropriate schedule of drug administration [Unknown]
